FAERS Safety Report 8571118-7 (Version None)
Quarter: 2012Q3

REPORT INFORMATION
  Report Type: 
  Country: None (occurrence: None)
  Receive Date: 20120806
  Receipt Date: 20120731
  Transmission Date: 20120928
  Serious: No
  Sender: FDA-Public Use
  Company Number: US-PFIZER INC-2012186841

PATIENT
  Sex: Male

DRUGS (3)
  1. LYRICA [Suspect]
     Indication: MYALGIA
  2. LYRICA [Suspect]
     Indication: ARTHRALGIA
     Dosage: UNK
     Route: 048
     Dates: start: 20120601, end: 20120723
  3. DICLOFENAC [Concomitant]
     Indication: ARTHRITIS
     Dosage: 50 MG, 3X/DAY
     Route: 048
     Dates: start: 20000101

REACTIONS (3)
  - ARTHRALGIA [None]
  - MYALGIA [None]
  - INFLAMMATION [None]
